FAERS Safety Report 7921047 (Version 4)
Quarter: 2013Q2

REPORT INFORMATION
  Report Type: Spontaneous
  Country: CA (occurrence: CA)
  Receive Date: 20110429
  Receipt Date: 20130618
  Transmission Date: 20140414
  Serious: Yes (Hospitalization)
  Sender: FDA-Public Use
  Company Number: CA-JNJFOC-20110409013

PATIENT
  Age: 56 Year
  Sex: Female
  Weight: 71 kg

DRUGS (6)
  1. REMICADE [Suspect]
     Indication: RHEUMATOID ARTHRITIS
     Route: 042
     Dates: start: 20120809, end: 201208
  2. REMICADE [Suspect]
     Indication: RHEUMATOID ARTHRITIS
     Dosage: PRODUCT DUE TO BE REINTRODUCED 19-MAY-2011
     Route: 042
     Dates: start: 20100507, end: 201103
  3. REMICADE [Suspect]
     Indication: RHEUMATOID ARTHRITIS
     Route: 042
     Dates: start: 201206
  4. METHOTREXATE [Concomitant]
     Route: 065
  5. BENADRYL [Concomitant]
     Indication: VOMITING
     Route: 065
     Dates: start: 201206
  6. BENADRYL [Concomitant]
     Indication: VOMITING
     Route: 065
     Dates: start: 20120809

REACTIONS (8)
  - Swelling face [Recovered/Resolved]
  - Eye infection viral [Recovered/Resolved]
  - Hypersensitivity [Unknown]
  - Dysphagia [Recovering/Resolving]
  - Infusion related reaction [Unknown]
  - Protein total decreased [Unknown]
  - Weight decreased [Recovering/Resolving]
  - Gingival swelling [Recovered/Resolved]
